FAERS Safety Report 18609638 (Version 3)
Quarter: 2021Q3

REPORT INFORMATION
  Report Type: Report from Study
  Country: US (occurrence: US)
  Receive Date: 20201214
  Receipt Date: 20210910
  Transmission Date: 20211014
  Serious: Yes (Hospitalization)
  Sender: FDA-Public Use
  Company Number: US-UCBSA-2020050154

PATIENT
  Age: 72 Year
  Sex: Female

DRUGS (3)
  1. KEPPRA [Suspect]
     Active Substance: LEVETIRACETAM
     Indication: PRODUCT USED FOR UNKNOWN INDICATION
     Dosage: 500 MILLIGRAM, 2X/DAY (BID)
  2. LACOSAMIDE. [Suspect]
     Active Substance: LACOSAMIDE
     Indication: SEIZURE
  3. LACOSAMIDE. [Suspect]
     Active Substance: LACOSAMIDE
     Indication: EPILEPSY
     Dosage: 200 MILLIGRAM, 2X/DAY (BID)

REACTIONS (5)
  - Fall [Not Recovered/Not Resolved]
  - Pain in extremity [Not Recovered/Not Resolved]
  - Hospitalisation [Recovered/Resolved]
  - Therapy interrupted [Unknown]
  - Product availability issue [Unknown]

NARRATIVE: CASE EVENT DATE: 202009
